FAERS Safety Report 23960829 (Version 1)
Quarter: 2024Q2

REPORT INFORMATION
  Report Type: Report from Study
  Country: US (occurrence: US)
  Receive Date: 20240611
  Receipt Date: 20240611
  Transmission Date: 20240716
  Serious: Yes (Other)
  Sender: FDA-Public Use
  Company Number: US-ABBVIE-5791815

PATIENT
  Age: 49 Year
  Sex: Female
  Weight: 88 kg

DRUGS (4)
  1. HUMIRA [Suspect]
     Active Substance: ADALIMUMAB
     Indication: Psoriasis
     Dosage: FORM STRENGTH: 40 MILLIGRAM
     Route: 058
     Dates: start: 202211
  2. HUMIRA [Suspect]
     Active Substance: ADALIMUMAB
     Indication: Sarcoidosis
  3. ROSUVASTATIN [Concomitant]
     Active Substance: ROSUVASTATIN
     Indication: Blood cholesterol increased
  4. LEVOTHYROXINE [Concomitant]
     Active Substance: LEVOTHYROXINE\LEVOTHYROXINE SODIUM
     Indication: Thyroidectomy

REACTIONS (12)
  - Trigeminal neuropathy [Unknown]
  - Meningitis [Unknown]
  - Paraesthesia [Unknown]
  - Central nervous system lesion [Unknown]
  - Hypoaesthesia [Unknown]
  - Headache [Not Recovered/Not Resolved]
  - Head discomfort [Unknown]
  - Neurosarcoidosis [Unknown]
  - Furuncle [Unknown]
  - Trigeminal nerve disorder [Unknown]
  - Meckel^s cave tumour [Unknown]
  - Immunosuppression [Unknown]

NARRATIVE: CASE EVENT DATE: 20240201
